FAERS Safety Report 15905244 (Version 4)
Quarter: 2020Q1

REPORT INFORMATION
  Report Type: Spontaneous
  Country: US (occurrence: US)
  Receive Date: 20190204
  Receipt Date: 20200128
  Transmission Date: 20200409
  Serious: Yes (Hospitalization, Other)
  Sender: FDA-Public Use
  Company Number: US-ASTRAZENECA-2018SF13529

PATIENT
  Age: 718 Month
  Sex: Female

DRUGS (48)
  1. NEXIUM [Suspect]
     Active Substance: ESOMEPRAZOLE MAGNESIUM
     Indication: GASTROOESOPHAGEAL REFLUX DISEASE
     Route: 048
     Dates: start: 20130719, end: 20171009
  2. CIPROFLOXACIN. [Concomitant]
     Active Substance: CIPROFLOXACIN
  3. NEOMYCIN. [Concomitant]
     Active Substance: NEOMYCIN
  4. VALSARTAN. [Concomitant]
     Active Substance: VALSARTAN
  5. CLINDAMYCIN. [Concomitant]
     Active Substance: CLINDAMYCIN
  6. BARIUM SULFATE [Concomitant]
     Active Substance: BARIUM SULFATE
  7. DEXILANT [Suspect]
     Active Substance: DEXLANSOPRAZOLE
     Indication: GASTROOESOPHAGEAL REFLUX DISEASE
     Route: 065
     Dates: start: 201307, end: 201710
  8. PROAIR HFA [Concomitant]
     Active Substance: ALBUTEROL SULFATE
  9. BUPROPION. [Concomitant]
     Active Substance: BUPROPION
  10. FAMOTIDINE. [Concomitant]
     Active Substance: FAMOTIDINE
  11. NEXIUM [Suspect]
     Active Substance: ESOMEPRAZOLE MAGNESIUM
     Indication: GASTROOESOPHAGEAL REFLUX DISEASE
     Dosage: GENERIC
     Route: 065
     Dates: start: 20160618
  12. PRILOSEC [Suspect]
     Active Substance: OMEPRAZOLE MAGNESIUM
     Route: 048
  13. GABAPENTIN. [Concomitant]
     Active Substance: GABAPENTIN
     Indication: NEURALGIA
     Dates: start: 20121112, end: 20181017
  14. LYRICA [Concomitant]
     Active Substance: PREGABALIN
     Indication: NEURALGIA
     Dates: start: 20130113, end: 20131030
  15. NEXIUM [Suspect]
     Active Substance: ESOMEPRAZOLE MAGNESIUM
     Indication: GASTROOESOPHAGEAL REFLUX DISEASE
     Route: 048
     Dates: start: 1998, end: 20171009
  16. ASCORBIC ACID. [Concomitant]
     Active Substance: ASCORBIC ACID
  17. AZITHROMYCIN ANHYDROUS. [Concomitant]
     Active Substance: AZITHROMYCIN ANHYDROUS
  18. KETOPROFEN. [Concomitant]
     Active Substance: KETOPROFEN
  19. NORTRIPTYLINE [Concomitant]
     Active Substance: NORTRIPTYLINE
  20. NEXIUM [Suspect]
     Active Substance: ESOMEPRAZOLE MAGNESIUM
     Indication: GASTROOESOPHAGEAL REFLUX DISEASE
     Route: 048
     Dates: start: 201307, end: 201710
  21. NEXIUM [Suspect]
     Active Substance: ESOMEPRAZOLE MAGNESIUM
     Indication: GASTROOESOPHAGEAL REFLUX DISEASE
     Dosage: GENERIC
     Route: 048
  22. IOHEXOL [Concomitant]
     Active Substance: IOHEXOL
  23. ATORVASTATIN [Concomitant]
     Active Substance: ATORVASTATIN
  24. KETOPROFEN. [Concomitant]
     Active Substance: KETOPROFEN
  25. AZTREONAM. [Concomitant]
     Active Substance: AZTREONAM
  26. MOMETASONE [Concomitant]
     Active Substance: MOMETASONE
  27. NEOMYCIN. [Concomitant]
     Active Substance: NEOMYCIN
  28. PANTOPRAZOLE [Suspect]
     Active Substance: PANTOPRAZOLE
     Indication: GASTROOESOPHAGEAL REFLUX DISEASE
     Route: 065
     Dates: start: 20170821, end: 20170822
  29. BUPROPION. [Concomitant]
     Active Substance: BUPROPION
  30. HYDROMORPHONE [Concomitant]
     Active Substance: HYDROMORPHONE
     Indication: PAIN
     Dates: start: 20121108, end: 20160224
  31. NEXIUM [Suspect]
     Active Substance: ESOMEPRAZOLE MAGNESIUM
     Indication: GASTROOESOPHAGEAL REFLUX DISEASE
     Route: 048
  32. GADOTERIDOL [Concomitant]
     Active Substance: GADOTERIDOL
  33. AMPICILLIN [Concomitant]
     Active Substance: AMPICILLIN
  34. ERYTHROMYCIN. [Concomitant]
     Active Substance: ERYTHROMYCIN
  35. CLINDAMYCIN. [Concomitant]
     Active Substance: CLINDAMYCIN
  36. LEVOFLOXACIN. [Concomitant]
     Active Substance: LEVOFLOXACIN
  37. NEUPRO [Concomitant]
     Active Substance: ROTIGOTINE
  38. VENTOLIN [Concomitant]
     Active Substance: ALBUTEROL SULFATE
  39. NAPROXEN. [Concomitant]
     Active Substance: NAPROXEN
     Indication: PAIN
     Dates: start: 20160225, end: 20170611
  40. NEXIUM [Suspect]
     Active Substance: ESOMEPRAZOLE MAGNESIUM
     Indication: GASTROOESOPHAGEAL REFLUX DISEASE
     Route: 048
  41. DEXILANT [Suspect]
     Active Substance: DEXLANSOPRAZOLE
     Indication: GASTROOESOPHAGEAL REFLUX DISEASE
     Route: 065
     Dates: start: 201307, end: 201710
  42. ALBUTEROL. [Concomitant]
     Active Substance: ALBUTEROL
  43. CALTRATE [Concomitant]
     Active Substance: CALCIUM CARBONATE
  44. AMOXICILLIN. [Concomitant]
     Active Substance: AMOXICILLIN
  45. OXYCODONE [Concomitant]
     Active Substance: OXYCODONE
  46. FLUTICASONE. [Concomitant]
     Active Substance: FLUTICASONE
  47. VITAMIN D [Concomitant]
     Active Substance: VITAMIN D NOS
     Indication: VITAMIN D DEFICIENCY
     Dates: start: 20170705, end: 20170821
  48. ASCORBIC ACID. [Concomitant]
     Active Substance: ASCORBIC ACID
     Indication: VITAMIN C DEFICIENCY
     Dates: start: 20151229, end: 20170821

REACTIONS (4)
  - Renal failure [Not Recovered/Not Resolved]
  - Chronic kidney disease [Not Recovered/Not Resolved]
  - Acute kidney injury [Unknown]
  - Renal injury [Unknown]

NARRATIVE: CASE EVENT DATE: 201702
